FAERS Safety Report 9126984 (Version 6)
Quarter: 2013Q2

REPORT INFORMATION
  Report Type: Spontaneous
  Country: IE (occurrence: IE)
  Receive Date: 20130228
  Receipt Date: 20130426
  Transmission Date: 20140414
  Serious: Yes (Hospitalization)
  Sender: FDA-Public Use
  Company Number: PHFR2013IE001404

PATIENT
  Age: 34 Year
  Sex: Male

DRUGS (5)
  1. CLOZARIL [Suspect]
     Indication: SCHIZOPHRENIA
     Dosage: UNK
     Route: 048
     Dates: start: 20090331
  2. CLOZARIL [Interacting]
     Dosage: 175 MG MANE AND 350 MG NOCTE
     Route: 048
     Dates: start: 20130129
  3. ESOMEPRAZOLE [Concomitant]
     Indication: GASTRITIS
     Dosage: 40 MG, UNK
  4. RIBAVIRIN [Concomitant]
     Dosage: UNK
  5. PEGINTERFERON [Concomitant]
     Indication: HEPATITIS C
     Dosage: UNK

REACTIONS (2)
  - Incorrect dose administered [Unknown]
  - Platelet count decreased [Recovered/Resolved]
